FAERS Safety Report 24660526 (Version 2)
Quarter: 2024Q4

REPORT INFORMATION
  Report Type: Spontaneous
  Country: JP (occurrence: JP)
  Receive Date: 20241125
  Receipt Date: 20241203
  Transmission Date: 20250115
  Serious: Yes (Other)
  Sender: BRISTOL-MYERS SQUIBB COMPANY
  Company Number: JP-ONO-2024JP023791

PATIENT

DRUGS (2)
  1. OPDIVO [Suspect]
     Active Substance: NIVOLUMAB
     Indication: Gastric cancer
     Dosage: UNK
     Route: 041
  2. OXALIPLATIN [Concomitant]
     Active Substance: OXALIPLATIN
     Indication: Gastric cancer
     Dosage: UNK

REACTIONS (6)
  - Pulmonary fibrosis [Unknown]
  - Aortic occlusion [Unknown]
  - Immune-mediated lung disease [Unknown]
  - Aortic aneurysm [Unknown]
  - Iliac artery occlusion [Unknown]
  - Peripheral artery aneurysm [Unknown]
